FAERS Safety Report 12850431 (Version 4)
Quarter: 2016Q4

REPORT INFORMATION
  Report Type: Spontaneous
  Country: PL (occurrence: PL)
  Receive Date: 20161014
  Receipt Date: 20161028
  Transmission Date: 20170207
  Serious: Yes (Other)
  Sender: FDA-Public Use
  Company Number: ALCN2016PL006832

PATIENT
  Age: 17 Year
  Sex: Female

DRUGS (3)
  1. CLAVULANIC ACID [Concomitant]
     Active Substance: CLAVULANIC ACID
     Indication: UPPER RESPIRATORY TRACT INFECTION
     Dosage: UNK
     Route: 065
  2. AMOXICILLIN. [Concomitant]
     Active Substance: AMOXICILLIN
     Indication: UPPER RESPIRATORY TRACT INFECTION
     Dosage: UNK
     Route: 065
  3. TOBRAMYCIN. [Suspect]
     Active Substance: TOBRAMYCIN
     Indication: CONJUNCTIVITIS
     Dosage: UNK
     Route: 047

REACTIONS (10)
  - Corneal opacity [Recovering/Resolving]
  - Visual acuity reduced [Recovered/Resolved]
  - Eye pain [Recovered/Resolved]
  - Eyelid oedema [Unknown]
  - Ocular hyperaemia [Unknown]
  - Conjunctival hyperaemia [Recovering/Resolving]
  - Drug ineffective [Unknown]
  - Corneal infiltrates [Recovered/Resolved]
  - Ulcerative keratitis [Recovered/Resolved with Sequelae]
  - Photophobia [Unknown]
